FAERS Safety Report 25767591 (Version 1)
Quarter: 2025Q3

REPORT INFORMATION
  Report Type: Spontaneous
  Country: US (occurrence: US)
  Receive Date: 20250905
  Receipt Date: 20250905
  Transmission Date: 20251020
  Serious: No
  Sender: CSL BEHRING
  Company Number: US-BEH-2025217451

PATIENT

DRUGS (1)
  1. ANDEMBRY [Suspect]
     Active Substance: GARADACIMAB-GXII
     Route: 065

REACTIONS (3)
  - Dizziness [Unknown]
  - Secretion discharge [Unknown]
  - Thirst [Unknown]
